FAERS Safety Report 15789784 (Version 1)
Quarter: 2018Q4

REPORT INFORMATION
  Report Type: Spontaneous
  Country: US (occurrence: US)
  Receive Date: 20181213
  Receipt Date: 20181213
  Transmission Date: 20190205
  Serious: Yes (Hospitalization)
  Sender: FDA-Public Use
  Company Number: None

PATIENT
  Age: 74 Year
  Sex: Male
  Weight: 85.73 kg

DRUGS (1)
  1. APIXABAN [Suspect]
     Active Substance: APIXABAN
     Indication: ATRIAL FIBRILLATION
     Route: 048
     Dates: start: 20171204, end: 20181119

REACTIONS (7)
  - Bacterial infection [None]
  - Epistaxis [None]
  - Anaemia [None]
  - Haemorrhage [None]
  - Hypotension [None]
  - Subcutaneous abscess [None]
  - Lip infection [None]

NARRATIVE: CASE EVENT DATE: 20181119
